FAERS Safety Report 6094757-4 (Version None)
Quarter: 2009Q1

REPORT INFORMATION
  Report Type: 
  Country: None (occurrence: None)
  Receive Date: 20090225
  Receipt Date: 20090216
  Transmission Date: 20090719
  Serious: Yes (Death, Hospitalization)
  Sender: FDA-Public Use
  Company Number: 2009AL000948

PATIENT
  Age: 21 Year
  Sex: Female

DRUGS (1)
  1. FEVERALL [Suspect]

REACTIONS (6)
  - ACUTE HEPATIC FAILURE [None]
  - BRAIN DEATH [None]
  - HAEMODIALYSIS [None]
  - OLIGURIA [None]
  - OVERDOSE [None]
  - RENAL TUBULAR NECROSIS [None]
